FAERS Safety Report 16338229 (Version 1)
Quarter: 2019Q2

REPORT INFORMATION
  Report Type: Spontaneous
  Country: US (occurrence: US)
  Receive Date: 20190521
  Receipt Date: 20190521
  Transmission Date: 20190711
  Serious: Yes (Other)
  Sender: FDA-Public Use
  Company Number: US-SA-2019SA136677

PATIENT
  Sex: Female

DRUGS (1)
  1. PLAVIX [Suspect]
     Active Substance: CLOPIDOGREL BISULFATE
     Indication: POSTOPERATIVE CARE
     Dosage: UNK, UNK
     Route: 065

REACTIONS (4)
  - Thrombosis [Unknown]
  - Muscle spasms [Unknown]
  - Vascular graft [Unknown]
  - Contusion [Unknown]
